FAERS Safety Report 5130776-X (Version None)
Quarter: 2006Q4

REPORT INFORMATION
  Report Type: 
  Country: None (occurrence: None)
  Receive Date: 20061019
  Receipt Date: 20060619
  Transmission Date: 20070319
  Serious: Yes (Disabling, Other)
  Sender: FDA-Public Use
  Company Number: PHFR2006GB02043

PATIENT
  Age: 60 Year
  Sex: Female

DRUGS (9)
  1. ZOMETA [Suspect]
     Indication: MULTIPLE MYELOMA
     Dosage: 4 MG
     Route: 042
  2. THALIDOMIDE [Concomitant]
     Indication: MULTIPLE MYELOMA
     Dosage: 50MG/DAY
     Route: 048
  3. DEXAMETHASONE TAB [Concomitant]
     Indication: MULTIPLE MYELOMA
     Route: 048
  4. CYCLOPHOSPHAMIDE [Concomitant]
     Dosage: 500 MG, QW
     Route: 048
  5. ALLOPURINOL [Concomitant]
     Indication: GOUT
     Route: 065
  6. FLUCONAZOLE [Concomitant]
     Indication: CANDIDIASIS
     Dosage: 50MG/DAY
     Route: 048
  7. OXYCODONE HCL [Concomitant]
     Indication: PAIN
     Dosage: 4 PER DAY
     Route: 048
  8. AMOXICILLIN [Concomitant]
     Route: 048
  9. METRONIDAZOLE [Concomitant]
     Route: 048

REACTIONS (4)
  - ACTINOMYCOSIS [None]
  - INFECTION [None]
  - OSTEONECROSIS [None]
  - TOOTH ABSCESS [None]
